FAERS Safety Report 7861857-5 (Version None)
Quarter: 2011Q4

REPORT INFORMATION
  Report Type: 
  Country: None (occurrence: None)
  Receive Date: 20111027
  Receipt Date: 20101207
  Transmission Date: 20120403
  Serious: No
  Sender: FDA-Public Use
  Company Number: US-AMGEN-USASP2010005392

PATIENT
  Age: 55 Year
  Sex: Female

DRUGS (2)
  1. HUMIRA [Concomitant]
  2. ENBREL [Suspect]
     Indication: PSORIATIC ARTHROPATHY
     Dosage: 50 MG, QWK
     Route: 058
     Dates: start: 20101014, end: 20101103

REACTIONS (15)
  - INJECTION SITE HAEMATOMA [None]
  - ACNE [None]
  - RHINORRHOEA [None]
  - INJECTION SITE WARMTH [None]
  - INJECTION SITE PRURITUS [None]
  - INJECTION SITE SWELLING [None]
  - INJECTION SITE REACTION [None]
  - FATIGUE [None]
  - NASOPHARYNGITIS [None]
  - INJECTION SITE PAIN [None]
  - PRODUCTIVE COUGH [None]
  - SINUS HEADACHE [None]
  - CHILLS [None]
  - SINUSITIS [None]
  - INJECTION SITE ERYTHEMA [None]
